FAERS Safety Report 18660425 (Version 1)
Quarter: 2020Q4

REPORT INFORMATION
  Report Type: Spontaneous
  Country: US (occurrence: US)
  Receive Date: 20201223
  Receipt Date: 20201223
  Transmission Date: 20210114
  Serious: Yes (Other)
  Sender: FDA-Public Use
  Company Number: None

PATIENT
  Age: 50 Year
  Sex: Female

DRUGS (4)
  1. PROGESTERONE CAP [Suspect]
     Active Substance: PROGESTERONE
     Route: 048
  2. SYNTHROID 137MCG [Concomitant]
     Dates: start: 20200123
  3. WELLBUTRIN XL [Concomitant]
     Active Substance: BUPROPION HYDROCHLORIDE
     Dates: start: 20200123
  4. VALTREX 500MG [Concomitant]
     Dates: start: 20200123

REACTIONS (4)
  - Dizziness [None]
  - Vertigo [None]
  - Urticaria [None]
  - Product substitution issue [None]

NARRATIVE: CASE EVENT DATE: 20201001
